FAERS Safety Report 7271367-4 (Version None)
Quarter: 2011Q1

REPORT INFORMATION
  Report Type: 
  Country: None (occurrence: None)
  Receive Date: 20110203
  Receipt Date: 20110119
  Transmission Date: 20110831
  Serious: No
  Sender: FDA-Public Use
  Company Number: US-BIOGENIDEC-2011BI003324

PATIENT
  Sex: Female

DRUGS (1)
  1. TYSABRI [Suspect]
     Indication: MULTIPLE SCLEROSIS
     Route: 042
     Dates: start: 20071004, end: 20100915

REACTIONS (10)
  - PALLOR [None]
  - BURNING SENSATION [None]
  - OXYGEN SATURATION DECREASED [None]
  - NECK PAIN [None]
  - HERPES ZOSTER [None]
  - ARTHRALGIA [None]
  - RESPIRATORY DISORDER [None]
  - BACK PAIN [None]
  - BONE PAIN [None]
  - ANTIBODY TEST ABNORMAL [None]
